FAERS Safety Report 25734843 (Version 1)
Quarter: 2025Q3

REPORT INFORMATION
  Report Type: Spontaneous
  Country: US (occurrence: US)
  Receive Date: 20250828
  Receipt Date: 20250828
  Transmission Date: 20251020
  Serious: Yes (Death)
  Sender: ROCHE
  Company Number: US-ROCHE-10000372351

PATIENT
  Sex: Male

DRUGS (5)
  1. ACTEMRA [Suspect]
     Active Substance: TOCILIZUMAB
     Indication: Disease susceptibility
     Route: 058
     Dates: start: 202503
  2. ACTEMRA [Suspect]
     Active Substance: TOCILIZUMAB
     Indication: Immunodeficiency
  3. ACTEMRA [Suspect]
     Active Substance: TOCILIZUMAB
     Indication: Pulmonary fibrosis
  4. GAMMAGARD [Concomitant]
     Active Substance: HUMAN IMMUNOGLOBULIN G
  5. OLUMIANT [Concomitant]
     Active Substance: BARICITINIB

REACTIONS (2)
  - Lung disorder [Fatal]
  - Off label use [Unknown]
